FAERS Safety Report 6173125-0 (Version None)
Quarter: 2009Q2

REPORT INFORMATION
  Report Type: 
  Country: None (occurrence: None)
  Receive Date: 20090430
  Receipt Date: 20090420
  Transmission Date: 20091009
  Serious: Yes (Death, Other)
  Sender: FDA-Public Use
  Company Number: JP-PFIZER INC-2009202220

PATIENT

DRUGS (1)
  1. POLYMYXIN-B-SULFATE [Suspect]
     Route: 042

REACTIONS (3)
  - BLOOD POTASSIUM DECREASED [None]
  - DEATH [None]
  - INCORRECT ROUTE OF DRUG ADMINISTRATION [None]
